FAERS Safety Report 7530137-X (Version None)
Quarter: 2011Q2

REPORT INFORMATION
  Report Type: 
  Country: None (occurrence: None)
  Receive Date: 20110527
  Receipt Date: 20110511
  Transmission Date: 20111010
  Serious: Yes (Other)
  Sender: FDA-Public Use
  Company Number: 2011SP007959

PATIENT
  Age: 74 Year
  Sex: Male
  Weight: 104.3273 kg

DRUGS (13)
  1. MAGNESIUM SULFATE [Concomitant]
  2. VITAMIN D [Concomitant]
  3. FLAX SEED OIL [Concomitant]
  4. VITAMIN A [Concomitant]
  5. ASCORBIC ACID [Concomitant]
  6. CALCIUM  C [Concomitant]
  7. MIRALAX [Suspect]
     Indication: CONSTIPATION
     Dosage: 17 GM;QD; PO, 17 GM;PO
     Route: 048
     Dates: start: 20090801, end: 20110101
  8. MIRALAX [Suspect]
     Indication: CONSTIPATION
     Dosage: 17 GM;QD; PO, 17 GM;PO
     Route: 048
  9. HYDROCHLOROTHIAZIDE [Concomitant]
  10. GLIMEPIRIDE [Concomitant]
  11. ASPIRIN [Concomitant]
  12. PRAVASTATIN [Concomitant]
  13. POTASSIUM CHLORIDE [Concomitant]

REACTIONS (6)
  - SPLEEN DISORDER [None]
  - NAIL DISORDER [None]
  - MEMORY IMPAIRMENT [None]
  - LUNG NEOPLASM [None]
  - HEPATIC NEOPLASM [None]
  - DRY SKIN [None]
